FAERS Safety Report 8691606 (Version 2)
Quarter: 2012Q4

REPORT INFORMATION
  Report Type: 
  Country: US (occurrence: US)
  Receive Date: 20120730
  Receipt Date: 20121025
  Transmission Date: 20130627
  Serious: Yes (Hospitalization)
  Sender: FDA-Public Use
  Company Number: US-BAYER-2012-072593

PATIENT
  Age: 27 Year
  Sex: Female
  Weight: 129.71 kg

DRUGS (14)
  1. YASMIN [Suspect]
     Dosage: UNK
     Dates: start: 200611, end: 200807
  2. OCELLA [Suspect]
     Dosage: UNK
     Dates: start: 200811, end: 200911
  3. MICARDIS HCT [Concomitant]
     Dosage: UNK
     Route: 048
     Dates: start: 200704, end: 20071020
  4. CIPRO [Concomitant]
     Dosage: UNK
     Route: 048
     Dates: start: 200703, end: 200711
  5. AZITHROMYCIN [Concomitant]
     Dosage: UNK
     Route: 048
     Dates: start: 200608, end: 200909
  6. CYCLOBENZAPRINE [Concomitant]
     Dosage: UNK
     Route: 048
     Dates: start: 200703
  7. METRONIDAZOLE [Concomitant]
     Dosage: UNK
     Route: 048
     Dates: start: 200509, end: 200712
  8. LORATADINE [Concomitant]
     Dosage: UNK
     Route: 048
     Dates: start: 200512, end: 200911
  9. NASONEX [Concomitant]
     Dosage: UNK
     Route: 045
     Dates: start: 200509, end: 200911
  10. NIFEDICAL XL [Concomitant]
     Dosage: UNK
     Route: 048
     Dates: start: 200605, end: 200702
  11. IBUPROFEN [Concomitant]
     Dosage: UNK
     Route: 048
     Dates: start: 200611, end: 200904
  12. DIOVAN HCT [Concomitant]
     Dosage: UNK
     Route: 048
     Dates: start: 200611, end: 200703
  13. FLUCONAZOLE [Concomitant]
     Dosage: UNK
     Route: 048
     Dates: start: 200704, end: 200809
  14. RANITIDINE [Concomitant]
     Dosage: UNK
     Route: 048
     Dates: start: 200705, end: 200911

REACTIONS (2)
  - Cholelithiasis [None]
  - Injury [None]
